FAERS Safety Report 7280613-2 (Version None)
Quarter: 2011Q1

REPORT INFORMATION
  Report Type: 
  Country: None (occurrence: None)
  Receive Date: 20110126
  Receipt Date: 20110112
  Transmission Date: 20110831
  Serious: Yes (Hospitalization)
  Sender: FDA-Public Use
  Company Number: UTC-004245

PATIENT
  Age: 33 Year
  Sex: Female
  Weight: 87 kg

DRUGS (5)
  1. TRACLEER [Concomitant]
  2. DIURETICS (DIURETICS) [Concomitant]
  3. REVATIO [Concomitant]
  4. COUMADIN [Concomitant]
  5. REMODULIN [Suspect]
     Indication: PULMONARY ARTERIAL HYPERTENSION
     Dosage: 168.48 UG/KG (0.117 UG/KG,1 IN 1 MIN),INTRAVENOUS
     Route: 042
     Dates: start: 20100127

REACTIONS (2)
  - DYSPNOEA [None]
  - FLUID RETENTION [None]
